FAERS Safety Report 7684885-1 (Version None)
Quarter: 2011Q3

REPORT INFORMATION
  Report Type: 
  Country: None (occurrence: None)
  Receive Date: 20110816
  Receipt Date: 20110804
  Transmission Date: 20111222
  Serious: No
  Sender: FDA-Public Use
  Company Number: US-BAYER-2011-071482

PATIENT
  Age: 2 Year
  Sex: Female
  Weight: 10.884 kg

DRUGS (1)
  1. ALEVE (CAPLET) [Suspect]
     Dosage: 1 DF, ONCE, BOTTLE COUNT 24S
     Route: 048
     Dates: start: 20110804

REACTIONS (1)
  - NO ADVERSE EVENT [None]
